FAERS Safety Report 17482643 (Version 1)
Quarter: 2020Q1

REPORT INFORMATION
  Report Type: Spontaneous
  Country: US (occurrence: US)
  Receive Date: 20200302
  Receipt Date: 20200302
  Transmission Date: 20200409
  Serious: Yes (Other)
  Sender: FDA-Public Use
  Company Number: US-JNJFOC-20200234972

PATIENT
  Sex: Male

DRUGS (3)
  1. INVEGA [Suspect]
     Active Substance: PALIPERIDONE
     Route: 048
  2. INVEGA [Suspect]
     Active Substance: PALIPERIDONE
     Indication: SCHIZOPHRENIA
     Route: 048
  3. INVEGA SUSTENNA [Suspect]
     Active Substance: PALIPERIDONE PALMITATE
     Indication: SCHIZOPHRENIA
     Dosage: 234MG AND 156MG
     Route: 030

REACTIONS (1)
  - Schizophrenia [Recovering/Resolving]

NARRATIVE: CASE EVENT DATE: 20200220
